FAERS Safety Report 16916818 (Version 1)
Quarter: 2019Q4

REPORT INFORMATION
  Report Type: Spontaneous
  Country: US (occurrence: US)
  Receive Date: 20191015
  Receipt Date: 20191015
  Transmission Date: 20200122
  Serious: No
  Sender: FDA-Public Use
  Company Number: US-SHIRE-US201933839

PATIENT
  Sex: Male

DRUGS (1)
  1. ELAPRASE [Suspect]
     Active Substance: IDURSULFASE
     Indication: MUCOPOLYSACCHARIDOSIS II
     Dosage: UNK, 1X/WEEK (WEEKLY)
     Route: 042
     Dates: start: 20160624

REACTIONS (2)
  - Nasal congestion [Not Recovered/Not Resolved]
  - Adenoidal disorder [Not Recovered/Not Resolved]
